FAERS Safety Report 5778396-8 (Version None)
Quarter: 2008Q2

REPORT INFORMATION
  Report Type: 
  Country: None (occurrence: None)
  Receive Date: 20080616
  Receipt Date: 20070814
  Transmission Date: 20081010
  Serious: Yes (Hospitalization)
  Sender: FDA-Public Use
  Company Number: WAES 0708USA02781

PATIENT
  Age: 50 Year
  Sex: Male

DRUGS (3)
  1. COZAAR [Suspect]
     Indication: BLOOD CHOLESTEROL INCREASED
     Dosage: 50 MG/DAILY/PO; PO; PO
     Route: 048
     Dates: start: 20040101, end: 20070525
  2. COZAAR [Suspect]
     Indication: BLOOD CHOLESTEROL INCREASED
     Dosage: 50 MG/DAILY/PO; PO; PO
     Route: 048
     Dates: start: 20070526, end: 20070608
  3. COZAAR [Suspect]
     Indication: BLOOD CHOLESTEROL INCREASED
     Dosage: 50 MG/DAILY/PO; PO; PO
     Route: 048
     Dates: start: 20070626

REACTIONS (3)
  - DIZZINESS [None]
  - DYSPNOEA [None]
  - MUSCULAR WEAKNESS [None]
